APPROVED DRUG PRODUCT: ETHCHLORVYNOL
Active Ingredient: ETHCHLORVYNOL
Strength: 100MG
Dosage Form/Route: CAPSULE;ORAL
Application: A084463 | Product #001
Applicant: BANNER PHARMACAPS INC
Approved: Approved Prior to Jan 1, 1982 | RLD: No | RS: No | Type: DISCN